FAERS Safety Report 5888806-3 (Version None)
Quarter: 2008Q3

REPORT INFORMATION
  Report Type: 
  Country: None (occurrence: None)
  Receive Date: 20080916
  Receipt Date: 20080903
  Transmission Date: 20090109
  Serious: Yes (Death, Hospitalization)
  Sender: FDA-Public Use
  Company Number: SE-2008-0573

PATIENT
  Age: 77 Year
  Sex: Female

DRUGS (12)
  1. NAVELBINE [Suspect]
     Indication: ADENOCARCINOMA
     Dosage: 10 MG/ML, CYCLICAL, INTRAVENOUS
     Route: 042
     Dates: start: 20080625, end: 20080722
  2. NAVELBINE [Suspect]
     Indication: LUNG NEOPLASM MALIGNANT
     Dosage: 10 MG/ML, CYCLICAL, INTRAVENOUS
     Route: 042
     Dates: start: 20080625, end: 20080722
  3. NAVELBINE [Suspect]
     Indication: METASTASIS
     Dosage: 10 MG/ML, CYCLICAL, INTRAVENOUS
     Route: 042
     Dates: start: 20080625, end: 20080722
  4. PARAPLATIN [Suspect]
     Indication: ADENOCARCINOMA
     Dosage: 10 MG/ML, CYCLICAL, INTRAVENOUS
     Route: 042
     Dates: start: 20080625, end: 20080716
  5. PARAPLATIN [Suspect]
     Indication: LUNG NEOPLASM MALIGNANT
     Dosage: 10 MG/ML, CYCLICAL, INTRAVENOUS
     Route: 042
     Dates: start: 20080625, end: 20080716
  6. PARAPLATIN [Suspect]
     Indication: METASTASIS
     Dosage: 10 MG/ML, CYCLICAL, INTRAVENOUS
     Route: 042
     Dates: start: 20080625, end: 20080716
  7. LASIX (FUROSEMIDE) PROLONGED-RELEASE CAPSULE [Concomitant]
  8. LEVAXIN (LEVOTHYROXINE SODIUM) TABLET [Concomitant]
  9. BETAPRED (BETAMETHASONE SODIUM PHOSPHATE) TABLET [Concomitant]
  10. NAVOBAN (TROPISETRON HYDROCHLORIDE) CAPSULE (HARD) [Concomitant]
  11. SOTALOL HCL [Concomitant]
  12. SPIRONOLACTONE [Concomitant]

REACTIONS (9)
  - AGRANULOCYTOSIS [None]
  - DIARRHOEA [None]
  - FATIGUE [None]
  - HYPOTENSION [None]
  - HYPOXIA [None]
  - NEUTROPENIA [None]
  - PYREXIA [None]
  - SEPSIS [None]
  - VOMITING [None]
